FAERS Safety Report 11804034 (Version 2)
Quarter: 2015Q4

REPORT INFORMATION
  Report Type: Spontaneous
  Country: DE (occurrence: DE)
  Receive Date: 20151204
  Receipt Date: 20151208
  Transmission Date: 20160305
  Serious: Yes (Congenital Anomaly, Other)
  Sender: FDA-Public Use
  Company Number: DE-JNJFOC-20151120945

PATIENT
  Age: 0 Year
  Sex: Male
  Weight: 4.29 kg

DRUGS (7)
  1. NOVAMINSULFON [Concomitant]
     Active Substance: METAMIZOLE
     Indication: FIBROMYALGIA
     Route: 064
     Dates: start: 20140525, end: 20140617
  2. BISOPROLOL [Suspect]
     Active Substance: BISOPROLOL
     Indication: HYPERTENSION
     Route: 064
     Dates: start: 20140525, end: 20150220
  3. TRAUMEEL [Concomitant]
     Indication: PAIN
     Route: 064
  4. VALDOXAN [Concomitant]
     Active Substance: AGOMELATINE
     Indication: DEPRESSION
     Route: 064
     Dates: start: 20140525, end: 20140612
  5. ZYRTEC [Suspect]
     Active Substance: CETIRIZINE HYDROCHLORIDE
     Route: 064
  6. FOLIC ACID. [Concomitant]
     Active Substance: FOLIC ACID
     Indication: PROPHYLAXIS OF NEURAL TUBE DEFECT
     Route: 064
     Dates: start: 20140612, end: 20150220
  7. ZYRTEC [Suspect]
     Active Substance: CETIRIZINE HYDROCHLORIDE
     Indication: HYPERSENSITIVITY
     Route: 064
     Dates: start: 20140525, end: 20140928

REACTIONS (8)
  - Reflux nephropathy [Not Recovered/Not Resolved]
  - Large for dates baby [Unknown]
  - Caesarean section [None]
  - Congenital hydronephrosis [Not Recovered/Not Resolved]
  - Foetal exposure during pregnancy [Unknown]
  - Foetal heart rate deceleration abnormality [Unknown]
  - Maternal drugs affecting foetus [None]
  - Hydroureter [Not Recovered/Not Resolved]

NARRATIVE: CASE EVENT DATE: 20140525
